FAERS Safety Report 21620642 (Version 1)
Quarter: 2022Q4

REPORT INFORMATION
  Report Type: Spontaneous
  Country: NL (occurrence: NL)
  Receive Date: 20221121
  Receipt Date: 20221121
  Transmission Date: 20230112
  Serious: Yes (Death, Hospitalization)
  Sender: FDA-Public Use
  Company Number: NL-STRIDES ARCOLAB LIMITED-2022SP015487

PATIENT
  Age: 39 Year
  Sex: Male

DRUGS (5)
  1. PREDNISOLONE [Suspect]
     Active Substance: PREDNISOLONE
     Indication: Sarcoidosis
     Dosage: UNK, DOSAGE: RECEIVED PREDNISOLONE AT VARIOUS DOSES (5-30MG/DAY) FOR 3 YEARS
     Route: 065
  2. PREDNISOLONE [Suspect]
     Active Substance: PREDNISOLONE
     Indication: Pyrexia
     Dosage: 15 MILLIGRAM PER DAY, DOSAGE: AT INITIAL PRESENTATION
     Route: 065
  3. PREDNISOLONE [Suspect]
     Active Substance: PREDNISOLONE
     Dosage: UNK, DOSE WAS INCREASED BY 7.5 MG/DAY
     Route: 065
  4. PREDNISOLONE [Suspect]
     Active Substance: PREDNISOLONE
     Dosage: 25 MILLIGRAM PER DAY
     Route: 065
  5. PREDNISOLONE [Suspect]
     Active Substance: PREDNISOLONE
     Dosage: 60 MILLIGRAM PER DAY, DOSAGE: PATIENT HIMSELF ADMINISTERED A NUMBER OF COURSES OF 60MG/DAY
     Route: 065

REACTIONS (10)
  - Haemophagocytic lymphohistiocytosis [Fatal]
  - Histoplasmosis disseminated [Fatal]
  - Intentional product misuse [Fatal]
  - Pancytopenia [Fatal]
  - Depressed level of consciousness [Fatal]
  - Multiple organ dysfunction syndrome [Fatal]
  - Hepatitis E [Unknown]
  - Pneumonia [Unknown]
  - Actinomycosis [Unknown]
  - Drug ineffective [Unknown]
